FAERS Safety Report 7355947-3 (Version None)
Quarter: 2011Q1

REPORT INFORMATION
  Report Type: 
  Country: None (occurrence: None)
  Receive Date: 20110316
  Receipt Date: 20110309
  Transmission Date: 20110831
  Serious: Yes (Other)
  Sender: FDA-Public Use
  Company Number: US-AMGEN-USASP2011013531

PATIENT
  Sex: Female

DRUGS (3)
  1. CYTOXAN [Concomitant]
  2. TAXOTERE [Concomitant]
  3. NEULASTA [Suspect]
     Indication: NEUTROPENIA
     Dates: start: 20110201

REACTIONS (3)
  - SWOLLEN TONGUE [None]
  - PYREXIA [None]
  - TONGUE DISORDER [None]
